FAERS Safety Report 11183979 (Version 1)
Quarter: 2015Q2

REPORT INFORMATION
  Report Type: Spontaneous
  Country: IT (occurrence: None)
  Receive Date: 20150610
  Receipt Date: 20150610
  Transmission Date: 20150821
  Serious: Yes (Death)
  Sender: FDA-Public Use
  Company Number: FK201502628

PATIENT
  Age: 61 Year
  Sex: Male

DRUGS (4)
  1. FLUOROURACIL. [Suspect]
     Active Substance: FLUOROURACIL
     Indication: COLORECTAL CANCER METASTATIC
     Dosage: 850 MG/M2, 1 IN 2 WK, INTRAVENOUS BOLUS
     Route: 040
  2. LEUCOVORIN CALCIUM (MANUFACTURER UNKNOWN) (LEUCOVORIN CALCIUM) (LEUCOVORIN CALCIUM) [Suspect]
     Active Substance: LEUCOVORIN CALCIUM
     Indication: COLORECTAL CANCER METASTATIC
     Route: 042
  3. IRINOTECAN (MANUFACTURER UNKNOWN) (IRINOTECAN) (IRINOTECAN) [Suspect]
     Active Substance: IRINOTECAN
     Indication: COLORECTAL CANCER METASTATIC
     Dosage: 200 MG/M2, 1 IN 2 WK, INTRAVENOUS (NOT OTHERWISE SPECIFIED
     Route: 042
  4. BEVACIZUMAB (BEVACIZUMAB) (BEVACIZUMAB) [Suspect]
     Active Substance: BEVACIZUMAB
     Indication: COLORECTAL CANCER METASTATIC
     Dosage: 5MG/KG, 1 IN 2WK, INTRAVENOUS (NOT OTHERWISE SPECIFIED)
     Route: 042

REACTIONS (2)
  - Neutropenic sepsis [None]
  - Cerebrovascular accident [None]
